FAERS Safety Report 18758370 (Version 2)
Quarter: 2021Q1

REPORT INFORMATION
  Report Type: Spontaneous
  Country: US (occurrence: US)
  Receive Date: 20210119
  Receipt Date: 20210325
  Transmission Date: 20210419
  Serious: Yes (Hospitalization)
  Sender: FDA-Public Use
  Company Number: US-PFM-2021-00683

PATIENT
  Sex: Female
  Weight: 6.3 kg

DRUGS (2)
  1. HEMANGEOL [Suspect]
     Active Substance: PROPRANOLOL HYDROCHLORIDE
     Indication: INFANTILE HAEMANGIOMA
     Dosage: 1.05 ML, TID (3/DAY)
     Route: 065
  2. HEMANGEOL [Suspect]
     Active Substance: PROPRANOLOL HYDROCHLORIDE
     Dosage: 1.45 ML, TID (3/DAY)
     Route: 065

REACTIONS (4)
  - Product use issue [Unknown]
  - Haemangioma [Unknown]
  - Condition aggravated [Unknown]
  - Off label use [Unknown]
